FAERS Safety Report 10165740 (Version 1)
Quarter: 2014Q2

REPORT INFORMATION
  Report Type: Spontaneous
  Country: US (occurrence: US)
  Receive Date: 20140510
  Receipt Date: 20140510
  Transmission Date: 20141212
  Serious: No
  Sender: FDA-Public Use
  Company Number: US-BRISTOL-MYERS SQUIBB COMPANY-19920057

PATIENT
  Age: 62 Year
  Sex: Male
  Weight: 116.55 kg

DRUGS (4)
  1. BYDUREON [Suspect]
     Indication: TYPE 2 DIABETES MELLITUS
  2. METFORMIN [Concomitant]
     Dosage: 1000(UNIT NOS)
  3. GLIPIZIDE [Concomitant]
  4. JANUVIA [Concomitant]
     Dosage: 10 (UNITS NOS)

REACTIONS (3)
  - Injection site nodule [Unknown]
  - Weight decreased [Unknown]
  - Injection site haemorrhage [Unknown]
